FAERS Safety Report 12857151 (Version 1)
Quarter: 2016Q4

REPORT INFORMATION
  Report Type: Spontaneous
  Country: US (occurrence: US)
  Receive Date: 20161018
  Receipt Date: 20161018
  Transmission Date: 20170207
  Serious: No
  Sender: FDA-Public Use
  Company Number: US-GLAXOSMITHKLINE-US2016151509

PATIENT
  Sex: Female

DRUGS (8)
  1. LEVOCETIRIZINE [Concomitant]
     Active Substance: LEVOCETIRIZINE
  2. AZELASTINE [Concomitant]
     Active Substance: AZELASTINE
  3. IPRATROPIUM BROMIDE. [Concomitant]
     Active Substance: IPRATROPIUM BROMIDE
  4. AREDS 2 [Concomitant]
     Active Substance: MINERALS\VITAMINS
  5. FAMOTIDINE. [Concomitant]
     Active Substance: FAMOTIDINE
  6. BREO ELLIPTA [Suspect]
     Active Substance: FLUTICASONE FUROATE\VILANTEROL TRIFENATATE
     Indication: CHRONIC OBSTRUCTIVE PULMONARY DISEASE
     Dosage: 1 PUFF(S), QD
     Dates: start: 20161001, end: 201610
  7. BREO ELLIPTA [Suspect]
     Active Substance: FLUTICASONE FUROATE\VILANTEROL TRIFENATATE
  8. DETROL [Concomitant]
     Active Substance: TOLTERODINE TARTRATE

REACTIONS (1)
  - Speech disorder [Not Recovered/Not Resolved]
